FAERS Safety Report 19364601 (Version 10)
Quarter: 2021Q3

REPORT INFORMATION
  Report Type: Other
  Country: BR (occurrence: BR)
  Receive Date: 20210603
  Receipt Date: 20210803
  Transmission Date: 20211014
  Serious: Yes (Life-Threatening, Hospitalization, Other)
  Sender: FDA-Public Use
  Company Number: BR-ROCHE-2841035

PATIENT
  Age: 56 Year
  Sex: Female

DRUGS (19)
  1. XOLAIR [Suspect]
     Active Substance: OMALIZUMAB
     Route: 065
     Dates: start: 201905, end: 20210503
  2. FAMOTIDINE. [Concomitant]
     Active Substance: FAMOTIDINE
     Indication: PRODUCT USED FOR UNKNOWN INDICATION
     Dosage: UNK
     Route: 065
  3. XOLAIR [Suspect]
     Active Substance: OMALIZUMAB
     Route: 065
  4. XOLAIR [Suspect]
     Active Substance: OMALIZUMAB
     Route: 065
     Dates: start: 201908
  5. XOLAIR [Suspect]
     Active Substance: OMALIZUMAB
     Dosage: 24/MAY/202 (UNSPECIFIED YEAR)
     Route: 065
  6. XOLAIR [Suspect]
     Active Substance: OMALIZUMAB
     Dosage: 150 MG (24 MONTHS AGO)
     Route: 065
  7. XOLAIR [Suspect]
     Active Substance: OMALIZUMAB
     Route: 065
  8. DESLORATADINE. [Concomitant]
     Active Substance: DESLORATADINE
     Indication: PRODUCT USED FOR UNKNOWN INDICATION
     Dosage: UNK
     Route: 065
  9. PREDNISONE. [Concomitant]
     Active Substance: PREDNISONE
  10. XOLAIR [Suspect]
     Active Substance: OMALIZUMAB
     Dosage: UNK (EVERY 15 DAYS)
     Route: 065
  11. XOLAIR [Suspect]
     Active Substance: OMALIZUMAB
     Dosage: 150 MG (2 UNITS)
     Route: 065
     Dates: start: 20210610
  12. XOLAIR [Suspect]
     Active Substance: OMALIZUMAB
     Route: 065
     Dates: start: 20210524
  13. XOLAIR [Suspect]
     Active Substance: OMALIZUMAB
     Route: 065
     Dates: start: 20190524
  14. XOLAIR [Suspect]
     Active Substance: OMALIZUMAB
     Route: 065
     Dates: start: 20190808
  15. XOLAIR [Suspect]
     Active Substance: OMALIZUMAB
     Indication: CHRONIC SPONTANEOUS URTICARIA
     Route: 065
     Dates: start: 20190529
  16. XOLAIR [Suspect]
     Active Substance: OMALIZUMAB
     Route: 065
  17. XOLAIR [Suspect]
     Active Substance: OMALIZUMAB
     Route: 065
  18. XOLAIR [Suspect]
     Active Substance: OMALIZUMAB
     Route: 065
     Dates: start: 20190524, end: 20190808
  19. XOLAIR [Suspect]
     Active Substance: OMALIZUMAB
     Route: 065

REACTIONS (40)
  - Suffocation feeling [Recovered/Resolved]
  - Erythema [Recovered/Resolved]
  - Eyelid oedema [Recovered/Resolved]
  - Dizziness [Not Recovered/Not Resolved]
  - Fatigue [Unknown]
  - Peripheral swelling [Unknown]
  - Eye swelling [Unknown]
  - Oedema [Recovering/Resolving]
  - Lip oedema [Recovered/Resolved]
  - Product availability issue [Unknown]
  - Nasal oedema [Unknown]
  - Allergic reaction to excipient [Unknown]
  - Ocular hyperaemia [Recovered/Resolved]
  - Tachycardia [Recovered/Resolved]
  - Anxiety [Unknown]
  - Drug ineffective [Unknown]
  - Angioedema [Unknown]
  - Dermatitis allergic [Recovered/Resolved]
  - Vertigo [Recovering/Resolving]
  - Mouth swelling [Unknown]
  - Eye oedema [Not Recovered/Not Resolved]
  - Bundle branch block left [Unknown]
  - Therapeutic response shortened [Recovered/Resolved]
  - Arrhythmia [Not Recovered/Not Resolved]
  - Confusional state [Recovered/Resolved]
  - Oedema peripheral [Recovered/Resolved]
  - Flushing [Not Recovered/Not Resolved]
  - Emotional distress [Unknown]
  - Urticaria [Recovered/Resolved]
  - Dyspnoea [Recovered/Resolved]
  - Oedema mouth [Unknown]
  - Panic disorder [Unknown]
  - Swelling of eyelid [Unknown]
  - Malaise [Recovered/Resolved]
  - Inappropriate schedule of product administration [Unknown]
  - Near death experience [Recovered/Resolved]
  - Hypersensitivity [Recovered/Resolved]
  - Headache [Recovered/Resolved]
  - Vision blurred [Recovering/Resolving]
  - Nasal oedema [Recovered/Resolved]

NARRATIVE: CASE EVENT DATE: 20190524
